FAERS Safety Report 9436707 (Version 2)
Quarter: 2013Q4

REPORT INFORMATION
  Report Type: Spontaneous
  Country: FI (occurrence: FI)
  Receive Date: 20130802
  Receipt Date: 20131205
  Transmission Date: 20140711
  Serious: No
  Sender: FDA-Public Use
  Company Number: FI-JNJFOC-20130712353

PATIENT
  Age: 36 Year
  Sex: Male

DRUGS (4)
  1. DUROGESIC [Suspect]
     Indication: NERVE INJURY
     Route: 062
  2. DUROGESIC [Suspect]
     Indication: NERVE INJURY
     Route: 062
  3. DUROGESIC [Suspect]
     Indication: CANCER PAIN
     Route: 062
  4. DUROGESIC [Suspect]
     Indication: CANCER PAIN
     Route: 062

REACTIONS (3)
  - Product quality issue [Unknown]
  - Pain [Unknown]
  - Wrong technique in drug usage process [Unknown]
